FAERS Safety Report 12332073 (Version 3)
Quarter: 2016Q3

REPORT INFORMATION
  Report Type: Spontaneous
  Country: US (occurrence: US)
  Receive Date: 20160504
  Receipt Date: 20160708
  Transmission Date: 20161109
  Serious: No
  Sender: FDA-Public Use
  Company Number: US-PFIZER INC-2016241935

PATIENT
  Age: 88 Year
  Sex: Male
  Weight: 90.26 kg

DRUGS (2)
  1. SUTENT [Suspect]
     Active Substance: SUNITINIB MALATE
     Indication: RENAL CANCER METASTATIC
  2. SUTENT [Suspect]
     Active Substance: SUNITINIB MALATE
     Indication: RENAL CELL CARCINOMA
     Dosage: 50 MG, CYCLIC, ONCE A DAY, 4 WEEKS ON AND 2 WEEKS OFF
     Route: 048
     Dates: start: 20160321, end: 20160406

REACTIONS (7)
  - Weight decreased [Recovered/Resolved]
  - Fatigue [Recovered/Resolved]
  - Decreased appetite [Recovered/Resolved]
  - Blood glucose decreased [Recovered/Resolved]
  - Epistaxis [Recovered/Resolved]
  - Asthenia [Recovered/Resolved]
  - Diarrhoea [Recovered/Resolved]

NARRATIVE: CASE EVENT DATE: 20160326
